FAERS Safety Report 23035129 (Version 1)
Quarter: 2023Q4

REPORT INFORMATION
  Report Type: Spontaneous
  Country: US (occurrence: US)
  Receive Date: 20231005
  Receipt Date: 20231005
  Transmission Date: 20240110
  Serious: No
  Sender: FDA-Public Use
  Company Number: US-Horizon-KRY-1208-2020

PATIENT

DRUGS (1)
  1. KRYSTEXXA [Suspect]
     Active Substance: PEGLOTICASE
     Indication: Gout
     Dosage: EVERY 2 WEEKS
     Route: 042
     Dates: start: 20190725

REACTIONS (12)
  - Dyspnoea [Recovering/Resolving]
  - Blood pressure increased [Unknown]
  - Gout [Unknown]
  - Pain [Unknown]
  - Neuralgia [Unknown]
  - Asthenia [Unknown]
  - Poor venous access [Recovering/Resolving]
  - Burning sensation [Recovering/Resolving]
  - Muscle tightness [Recovering/Resolving]
  - Rash macular [Recovering/Resolving]
  - Hyperkeratosis [Unknown]
  - Therapeutic response unexpected [Unknown]

NARRATIVE: CASE EVENT DATE: 20190729
